FAERS Safety Report 25070516 (Version 2)
Quarter: 2025Q2

REPORT INFORMATION
  Report Type: Spontaneous
  Country: US (occurrence: US)
  Receive Date: 20250312
  Receipt Date: 20250623
  Transmission Date: 20250716
  Serious: No
  Sender: SANOFI AVENTIS
  Company Number: US-SA-2025SA072027

PATIENT
  Age: 63 Year
  Sex: Female

DRUGS (1)
  1. DUPIXENT [Suspect]
     Active Substance: DUPILUMAB
     Indication: Asthma
     Dosage: 300 MG, QOW
     Route: 058

REACTIONS (7)
  - Chronic obstructive pulmonary disease [Unknown]
  - Cough [Unknown]
  - Dyspnoea [Unknown]
  - Activities of daily living assessment [Unknown]
  - Insomnia [Unknown]
  - Condition aggravated [Unknown]
  - Injection site swelling [Unknown]
